FAERS Safety Report 5501266-7 (Version None)
Quarter: 2007Q4

REPORT INFORMATION
  Report Type: 
  Country: None (occurrence: None)
  Receive Date: 20071029
  Receipt Date: 20071023
  Transmission Date: 20080405
  Serious: Yes (Hospitalization, Other)
  Sender: FDA-Public Use
  Company Number: US-MERCK-0708USA04218

PATIENT
  Age: 86 Year
  Sex: Female
  Weight: 52 kg

DRUGS (9)
  1. FOSAMAX [Suspect]
     Indication: OSTEOPENIA
     Route: 048
     Dates: start: 20010101
  2. FOSAMAX [Suspect]
     Route: 048
     Dates: start: 19990101, end: 20000101
  3. FOSAMAX [Suspect]
     Indication: OSTEOPOROSIS
     Route: 048
     Dates: start: 20010101
  4. FOSAMAX [Suspect]
     Route: 048
     Dates: start: 19990101, end: 20000101
  5. DILTIAZEM HYDROCHLORIDE [Concomitant]
     Route: 048
     Dates: start: 19990101
  6. DYAZIDE [Concomitant]
     Route: 048
  7. ZESTRIL [Concomitant]
     Route: 048
     Dates: start: 19990101
  8. ARICEPT [Concomitant]
     Route: 048
     Dates: start: 20020101
  9. CALCIUM (UNSPECIFIED) AND VITAMIN D (UNSPECIFIED) [Concomitant]
     Route: 048
     Dates: start: 19990101

REACTIONS (1)
  - SPINAL COMPRESSION FRACTURE [None]
